FAERS Safety Report 20193521 (Version 23)
Quarter: 2025Q3

REPORT INFORMATION
  Report Type: Report from Study
  Country: CO (occurrence: CO)
  Receive Date: 20211216
  Receipt Date: 20250929
  Transmission Date: 20251020
  Serious: Yes (Life-Threatening, Other)
  Sender: TAKEDA
  Company Number: CO-TAKEDA-2021TUS017942

PATIENT
  Age: 14 Year
  Sex: Male
  Weight: 58 kg

DRUGS (13)
  1. ICATIBANT [Suspect]
     Active Substance: ICATIBANT ACETATE
     Indication: Hereditary angioedema
  2. ICATIBANT [Suspect]
     Active Substance: ICATIBANT ACETATE
     Dosage: UNK, UNK, Q6HR
     Dates: start: 20210311
  3. ICATIBANT [Suspect]
     Active Substance: ICATIBANT ACETATE
     Dosage: UNK, UNK, Q6HR
  4. ICATIBANT [Suspect]
     Active Substance: ICATIBANT ACETATE
  5. ICATIBANT [Suspect]
     Active Substance: ICATIBANT ACETATE
     Dosage: 25 MILLIGRAM, Q6HR
  6. ICATIBANT [Suspect]
     Active Substance: ICATIBANT ACETATE
     Dosage: UNK UNK, Q6HR
  7. ICATIBANT [Suspect]
     Active Substance: ICATIBANT ACETATE
  8. TAKHZYRO [Suspect]
     Active Substance: LANADELUMAB-FLYO
     Indication: Hereditary angioedema
     Dosage: 300 MILLIGRAM, Q2WEEKS
     Dates: start: 20210311
  9. TAKHZYRO [Suspect]
     Active Substance: LANADELUMAB-FLYO
     Dosage: 300 MILLIGRAM, Q2WEEKS
     Dates: start: 20210429
  10. TAKHZYRO [Suspect]
     Active Substance: LANADELUMAB-FLYO
     Dosage: 300 MILLIGRAM, Q4WEEKS
     Dates: start: 20210817
  11. TAKHZYRO [Suspect]
     Active Substance: LANADELUMAB-FLYO
     Dosage: UNK UNK, 2/MONTH
  12. TAKHZYRO [Suspect]
     Active Substance: LANADELUMAB-FLYO
     Dosage: 300 MILLIGRAM, Q2WEEKS
  13. TAKHZYRO [Suspect]
     Active Substance: LANADELUMAB-FLYO
     Dosage: 300 MILLIGRAM, Q2WEEKS

REACTIONS (14)
  - Hereditary angioedema [Recovered/Resolved]
  - Wound [Unknown]
  - Accident [Unknown]
  - Product distribution issue [Unknown]
  - Product prescribing error [Unknown]
  - Arthritis [Unknown]
  - Treatment noncompliance [Unknown]
  - Body temperature decreased [Recovering/Resolving]
  - Malaise [Recovering/Resolving]
  - Depression [Unknown]
  - Product use issue [Unknown]
  - Product availability issue [Unknown]
  - Headache [Recovering/Resolving]
  - Animal bite [Unknown]

NARRATIVE: CASE EVENT DATE: 20210429
